FAERS Safety Report 24104808 (Version 1)
Quarter: 2024Q3

REPORT INFORMATION
  Report Type: Spontaneous
  Country: US (occurrence: None)
  Receive Date: 20240716
  Receipt Date: 20240716
  Transmission Date: 20241016
  Serious: Yes (Life-Threatening)
  Sender: Public
  Company Number: None

PATIENT
  Age: 35 Year
  Sex: Male
  Weight: 133.2 kg

DRUGS (1)
  1. AVSOLA [Suspect]
     Active Substance: INFLIXIMAB-AXXQ
     Indication: Hidradenitis
     Dosage: OTHER FREQUENCY : EVERY 8 WEEKS;?
     Route: 042
     Dates: start: 20230802, end: 20240228

REACTIONS (14)
  - Infusion related reaction [None]
  - Erythema [None]
  - Hyperhidrosis [None]
  - Tremor [None]
  - Muscle rigidity [None]
  - Scleral hyperaemia [None]
  - Speech disorder [None]
  - Throat tightness [None]
  - Muscle tightness [None]
  - Chest discomfort [None]
  - Skin tightness [None]
  - Dyspnoea [None]
  - Oxygen saturation decreased [None]
  - Oropharyngeal pain [None]

NARRATIVE: CASE EVENT DATE: 20240228
